FAERS Safety Report 20037750 (Version 1)
Quarter: 2021Q4

REPORT INFORMATION
  Report Type: Report from Study
  Country: US (occurrence: US)
  Receive Date: 20211105
  Receipt Date: 20211105
  Transmission Date: 20220303
  Serious: Yes (Hospitalization)
  Sender: FDA-Public Use
  Company Number: US-RECRO GAINESVILLE LLC-REPH-2021-000016

PATIENT
  Age: 41 Year
  Sex: Female

DRUGS (1)
  1. VERAPAMIL HYDROCHLORIDE [Suspect]
     Active Substance: VERAPAMIL HYDROCHLORIDE
     Indication: Product used for unknown indication
     Dosage: 80 TAB, ONE TIME DOSE
     Route: 048

REACTIONS (16)
  - Suicide attempt [Recovered/Resolved]
  - Intentional overdose [Recovered/Resolved]
  - Metabolic acidosis [Recovered/Resolved]
  - Peripheral artery thrombosis [Recovered/Resolved]
  - Acute respiratory failure [Recovered/Resolved]
  - Renal failure [Recovered/Resolved]
  - Leukocytosis [Recovered/Resolved]
  - Tachycardia [Recovered/Resolved]
  - Pneumatosis intestinalis [Recovered/Resolved]
  - Colitis ischaemic [Recovered/Resolved]
  - Hypervolaemia [Recovered/Resolved]
  - Pyrexia [Recovered/Resolved]
  - Atrioventricular block complete [Recovered/Resolved]
  - Lethargy [Recovered/Resolved]
  - Sinus bradycardia [Recovered/Resolved]
  - Hypotension [Recovered/Resolved]
